FAERS Safety Report 9781693 (Version 1)
Quarter: 2013Q4

REPORT INFORMATION
  Report Type: Spontaneous
  Country: US (occurrence: US)
  Receive Date: 20131224
  Receipt Date: 20131224
  Transmission Date: 20140711
  Serious: No
  Sender: FDA-Public Use
  Company Number: US-BAYER-2013-155878

PATIENT
  Sex: Female

DRUGS (1)
  1. ALEVE GELCAPS [Suspect]
     Indication: BACK PAIN
     Dosage: 1 DF, BID
     Route: 048
     Dates: start: 20131217

REACTIONS (1)
  - Dizziness [Recovered/Resolved]
